FAERS Safety Report 6993293 (Version 2)
Quarter: 2022Q3

REPORT INFORMATION
  Report Type: Spontaneous
  Country: DE (occurrence: DE)
  Receive Date: 20090513
  Receipt Date: 20220906
  Transmission Date: 20221027
  Serious: Yes (Death, Other)
  Sender: FDA-Public Use
  Company Number: DE-ALEXION-A200700047

PATIENT
  Age: 59 Year
  Sex: Female
  Weight: 65 kg

DRUGS (12)
  1. SOLIRIS [Suspect]
     Active Substance: ECULIZUMAB
     Indication: Paroxysmal nocturnal haemoglobinuria
     Dosage: 600 MG, SINGLE
     Route: 042
     Dates: start: 20070809, end: 20070809
  2. ALDACTONE                          /00006201/ [Concomitant]
     Dosage: 50 MG, QD
  3. MOXIFLOXACIN HYDROCHLORIDE [Concomitant]
     Active Substance: MOXIFLOXACIN HYDROCHLORIDE
     Dosage: 400 MG, QD
  4. METOPROLOL SUCCINATE [Concomitant]
     Active Substance: METOPROLOL SUCCINATE
     Dosage: 1 TABLET, QD
  5. CIPROBAY                           /00697201/ [Concomitant]
     Dosage: 250 MG, BID
  6. ENOXAPARIN SODIUM [Concomitant]
     Active Substance: ENOXAPARIN SODIUM
     Dosage: .4 UNK, QD
  7. PANCRELIPASE [Concomitant]
     Active Substance: PANCRELIPASE
     Dosage: 50000 IU, TID
  8. LEVOTHYROXINE SODIUM [Concomitant]
     Active Substance: LEVOTHYROXINE SODIUM
     Dosage: 50 UG, QD
  9. NOVALGIN                           /00039501/ [Concomitant]
     Dosage: 25 MG, UNK
  10. PANTOZOL [Concomitant]
     Active Substance: PANTOPRAZOLE SODIUM
     Dosage: 40 MG, BID
  11. MORPHINE [Concomitant]
     Active Substance: MORPHINE
     Dosage: 10 MG, QID
  12. ALIZAPRIDE HYDROCHLORIDE [Concomitant]
     Active Substance: ALIZAPRIDE HYDROCHLORIDE
     Dosage: 1AMP, TID

REACTIONS (2)
  - Pulmonary thrombosis [Fatal]
  - Septic shock [Fatal]

NARRATIVE: CASE EVENT DATE: 20070819
